FAERS Safety Report 5019207-8 (Version None)
Quarter: 2006Q2

REPORT INFORMATION
  Report Type: 
  Country: None (occurrence: None)
  Receive Date: 20060531
  Receipt Date: 20060516
  Transmission Date: 20061013
  Serious: Yes (Death, Life-Threatening, Hospitalization)
  Sender: FDA-Public Use
  Company Number: 23100286

PATIENT
  Age: 68 Year
  Sex: Female

DRUGS (2)
  1. ARGATROBAN [Suspect]
     Indication: MYOCARDIAL INFARCTION
     Dosage: 0.5 MCG/KG/MIN DAILY IV
     Route: 042
     Dates: start: 20060227, end: 20060228
  2. ARGATROBAN [Suspect]
     Indication: PROPHYLAXIS
     Dosage: 0.5 MCG/KG/MIN DAILY IV
     Route: 042
     Dates: start: 20060227, end: 20060228

REACTIONS (5)
  - ACTIVATED PARTIAL THROMBOPLASTIN TIME PROLONGED [None]
  - BLOOD CREATININE INCREASED [None]
  - BLOOD UREA INCREASED [None]
  - HAEMODYNAMIC INSTABILITY [None]
  - HAEMORRHAGE [None]
